FAERS Safety Report 10769618 (Version 1)
Quarter: 2015Q1

REPORT INFORMATION
  Report Type: Spontaneous
  Country: IT (occurrence: None)
  Receive Date: 20150204
  Receipt Date: 20150204
  Transmission Date: 20150721
  Serious: Yes (Hospitalization)
  Sender: FDA-Public Use
  Company Number: 2015IT0032

PATIENT
  Age: 19 Year
  Sex: Male

DRUGS (1)
  1. KINERET [Suspect]
     Active Substance: ANAKINRA
     Indication: JUVENILE IDIOPATHIC ARTHRITIS
     Dosage: 100 MG (100 MG, 1 IN 1 D), SUBCUTANEOUS
     Route: 058
     Dates: start: 20141210, end: 20150109

REACTIONS (1)
  - Acute hepatic failure [None]

NARRATIVE: CASE EVENT DATE: 20150112
